FAERS Safety Report 17847992 (Version 1)
Quarter: 2020Q2

REPORT INFORMATION
  Report Type: Spontaneous
  Country: US (occurrence: US)
  Receive Date: 20200601
  Receipt Date: 20200601
  Transmission Date: 20200714
  Serious: No
  Sender: FDA-Public Use
  Company Number: US-PURACAP PHARMACEUTICAL LLC-2020EPC00120

PATIENT
  Age: 68 Year
  Sex: Male

DRUGS (16)
  1. AMITRIPTYLINE (ZYDUS MANUFACTURER) [Suspect]
     Active Substance: AMITRIPTYLINE
     Indication: DEPRESSION
     Dosage: 10 MG, 1X/DAY
     Route: 048
     Dates: start: 20190530, end: 20190530
  2. MIRALAX [Concomitant]
     Active Substance: POLYETHYLENE GLYCOL 3350
     Dosage: UNK, 1X/DAY
  3. PROBIOTICS [Concomitant]
     Active Substance: PROBIOTICS NOS
     Dosage: UNK
  4. VITAMIN D3 [Concomitant]
     Active Substance: CHOLECALCIFEROL
     Dosage: 2000 IU, 1X/DAY
  5. FIBER [Concomitant]
     Active Substance: PSYLLIUM HUSK
     Dosage: UNK, AS NEEDED
  6. ESOMEPRAZOLE. [Concomitant]
     Active Substance: ESOMEPRAZOLE MAGNESIUM
     Dosage: 40 MG, 2X/DAY
  7. TRAMADOL IR [Concomitant]
     Active Substance: TRAMADOL
     Dosage: 50 MG, 6X/DAY AS NEEDED
  8. DUTASTERIDE. [Suspect]
     Active Substance: DUTASTERIDE
     Indication: DYSURIA
     Dosage: 0.5 MG, 1X/DAY
     Dates: start: 2019, end: 20190529
  9. GABAPENTIN. [Concomitant]
     Active Substance: GABAPENTIN
     Dosage: 600 MG, 3X/DAY
  10. CITRACAL (CALCIUM + VITAMIN D3) [Concomitant]
     Dosage: 1 DOSAGE UNITS, 2X/DAY
  11. CLONAZEPAM. [Concomitant]
     Active Substance: CLONAZEPAM
     Dosage: 0.5 MG, 3X/DAY
  12. MULTIVITAMIN FOR MEN [Concomitant]
     Dosage: 1 DOSAGE UNITS, 1X/DAY
  13. VITAMIN C WITH ROSE HIPS [Concomitant]
     Dosage: UNK
  14. SYNTHROID [Concomitant]
     Active Substance: LEVOTHYROXINE SODIUM
     Dosage: 137 ?G, 1X/DAY
  15. HYDROXYCHLOROQUINE [Concomitant]
     Active Substance: HYDROXYCHLOROQUINE
     Dosage: 200 MG, 2X/DAY
  16. TESTOSTERONE. [Concomitant]
     Active Substance: TESTOSTERONE
     Dosage: 20 MG, 1X/DAY

REACTIONS (6)
  - Malaise [Recovering/Resolving]
  - Dizziness [Recovering/Resolving]
  - Nightmare [Unknown]
  - Depression [Unknown]
  - Unevaluable event [Unknown]
  - Therapeutic product effect prolonged [Unknown]

NARRATIVE: CASE EVENT DATE: 2019
